FAERS Safety Report 6423319-1 (Version None)
Quarter: 2009Q4

REPORT INFORMATION
  Report Type: 
  Country: None (occurrence: None)
  Receive Date: 20091102
  Receipt Date: 20091026
  Transmission Date: 20100525
  Serious: Yes (Hospitalization)
  Sender: FDA-Public Use
  Company Number: IT-ELI_LILLY_AND_COMPANY-IT200910006568

PATIENT
  Sex: Female

DRUGS (5)
  1. BYETTA [Suspect]
     Indication: TYPE 2 DIABETES MELLITUS
     Dosage: 20 UG, DAILY (1/D)
     Route: 058
     Dates: start: 20090116, end: 20091020
  2. GLUCOPHAGE [Concomitant]
     Dosage: 3000 MG, UNKNOWN
     Route: 048
     Dates: start: 20000101
  3. TOTALIP [Concomitant]
     Dosage: 20 MG, UNKNOWN
     Route: 048
     Dates: start: 20070101
  4. TICLOPIDINE HCL [Concomitant]
     Dosage: 250 MG, UNKNOWN
     Route: 065
     Dates: start: 20050101
  5. PROBIOTICA [Concomitant]
     Dosage: 50 MG, UNKNOWN
     Route: 048

REACTIONS (1)
  - RENAL NEOPLASM [None]
